FAERS Safety Report 5475870-9 (Version None)
Quarter: 2007Q3

REPORT INFORMATION
  Report Type: 
  Country: None (occurrence: None)
  Receive Date: 20070925
  Receipt Date: 20070508
  Transmission Date: 20080115
  Serious: Yes (Other)
  Sender: FDA-Public Use
  Company Number: 2007BH004161

PATIENT
  Sex: Male

DRUGS (3)
  1. ATIVAN [Suspect]
     Indication: AGITATION
     Dosage: 2 MG; IM
     Route: 030
     Dates: start: 20070416, end: 20070416
  2. OLANZAPINE [Concomitant]
  3. HALDOL [Concomitant]

REACTIONS (1)
  - RESPIRATORY FAILURE [None]
